FAERS Safety Report 18883822 (Version 2)
Quarter: 2022Q1

REPORT INFORMATION
  Report Type: Spontaneous
  Country: US (occurrence: US)
  Receive Date: 20210211
  Receipt Date: 20220302
  Transmission Date: 20220423
  Serious: No
  Sender: FDA-Public Use
  Company Number: US-PFIZER INC-2021123678

PATIENT
  Age: 74 Year
  Sex: Female
  Weight: 73.94 kg

DRUGS (6)
  1. IBRANCE [Suspect]
     Active Substance: PALBOCICLIB
     Indication: Breast cancer metastatic
     Dosage: 100 MG
  2. IBRANCE [Suspect]
     Active Substance: PALBOCICLIB
     Dosage: UNK
     Dates: start: 201909
  3. IBRANCE [Suspect]
     Active Substance: PALBOCICLIB
     Dosage: 100 MG, CYCLIC (ONCE A DAY FOR 21 DAYS AND THEN OFF 7 DAYS)
     Dates: start: 201909
  4. FASLODEX [Concomitant]
     Active Substance: FULVESTRANT
     Indication: Breast cancer metastatic
     Dosage: 500 MG, MONTHLY (ONCE A MONTH, 2 INJECTIONS OF 250 MG EACH   )
     Dates: start: 201909
  5. FASLODEX [Concomitant]
     Active Substance: FULVESTRANT
     Indication: Aromatase inhibition therapy
  6. ZOMETA [Concomitant]
     Active Substance: ZOLEDRONIC ACID
     Indication: Breast cancer metastatic
     Dosage: 3 MG, EVERY 3 MONTHS

REACTIONS (4)
  - Pain in extremity [Unknown]
  - Neuralgia [Unknown]
  - Nerve injury [Unknown]
  - Pain in extremity [Not Recovered/Not Resolved]

NARRATIVE: CASE EVENT DATE: 20210101
